FAERS Safety Report 10362974 (Version 1)
Quarter: 2014Q3

REPORT INFORMATION
  Report Type: Spontaneous
  Country: GB (occurrence: GB)
  Receive Date: 20140805
  Receipt Date: 20140805
  Transmission Date: 20150326
  Serious: Yes (Hospitalization)
  Sender: FDA-Public Use
  Company Number: GB-ACTAVISPR-2014-16720

PATIENT
  Sex: Male

DRUGS (4)
  1. DEXIMUNE [Concomitant]
     Indication: PRODUCT USED FOR UNKNOWN INDICATION
     Dosage: 25 MG CAPSULES,UNK
     Route: 065
  2. MYCOPHENOLATE ACCORD [Concomitant]
     Indication: PRODUCT USED FOR UNKNOWN INDICATION
     Dosage: 250 MG CAPSULES, UNK
     Route: 065
  3. DEXIMUNE [Concomitant]
     Dosage: 50 MG CAPSULES, UNK
     Route: 065
  4. PREDNISOLONE (UNKNOWN) [Suspect]
     Active Substance: PREDNISOLONE
     Indication: PRODUCT USED FOR UNKNOWN INDICATION
     Dosage: 5 MG TABLETS, UNK
     Route: 065

REACTIONS (1)
  - Renal impairment [Unknown]
